FAERS Safety Report 6558474-6 (Version None)
Quarter: 2010Q1

REPORT INFORMATION
  Report Type: 
  Country: None (occurrence: None)
  Receive Date: 20100128
  Receipt Date: 20100128
  Transmission Date: 20100710
  Serious: Yes (Hospitalization, Other)
  Sender: FDA-Public Use
  Company Number: None

PATIENT
  Sex: Female
  Weight: 77.1115 kg

DRUGS (2)
  1. SYNTHROID [Suspect]
     Indication: HYPOTHYROIDISM
     Dosage: .037 MG DAILY PO
     Route: 048
     Dates: start: 20080801, end: 20100127
  2. SYNTHROID [Suspect]
     Indication: THYROID NEOPLASM
     Dosage: .037 MG DAILY PO
     Route: 048
     Dates: start: 20080801, end: 20100127

REACTIONS (4)
  - ANAPHYLACTOID REACTION [None]
  - DRUG HYPERSENSITIVITY [None]
  - PRODUCT COLOUR ISSUE [None]
  - PRODUCT QUALITY ISSUE [None]
